FAERS Safety Report 14544963 (Version 1)
Quarter: 2018Q1

REPORT INFORMATION
  Report Type: Spontaneous
  Country: AU (occurrence: AU)
  Receive Date: 20180216
  Receipt Date: 20180216
  Transmission Date: 20180509
  Serious: Yes (Disabling)
  Sender: FDA-Public Use
  Company Number: None

PATIENT
  Age: 21 Year
  Sex: Female
  Weight: 95 kg

DRUGS (2)
  1. SIBICORTE ASTHMA PUFFER [Concomitant]
  2. CYMBALTA [Suspect]
     Active Substance: DULOXETINE HYDROCHLORIDE
     Indication: DEPRESSION
     Dosage: ?          QUANTITY:28 CAPSULE(S);?
     Route: 048

REACTIONS (3)
  - Restless legs syndrome [None]
  - Amnesia [None]
  - Night sweats [None]
